FAERS Safety Report 9553688 (Version 2)
Quarter: 2013Q4

REPORT INFORMATION
  Report Type: Report from Study
  Country: FR (occurrence: FR)
  Receive Date: 20130925
  Receipt Date: 20131213
  Transmission Date: 20140711
  Serious: Yes (Death, Hospitalization)
  Sender: FDA-Public Use
  Company Number: FR-ROCHE-1277907

PATIENT
  Age: 55 Year
  Sex: Male

DRUGS (4)
  1. RITUXIMAB [Suspect]
     Indication: CHRONIC LYMPHOCYTIC LEUKAEMIA
     Route: 042
  2. CYMEVAN [Concomitant]
     Indication: CYTOMEGALOVIRUS INFECTION
     Route: 042
     Dates: start: 20130710, end: 20130803
  3. AMBISOME [Concomitant]
     Indication: LUNG DISORDER
     Route: 042
     Dates: start: 20130711, end: 20130725
  4. MORPHINE [Concomitant]
     Indication: PAIN
     Route: 042
     Dates: start: 20130801, end: 20130803

REACTIONS (3)
  - Graft versus host disease in intestine [Fatal]
  - Erythema [Not Recovered/Not Resolved]
  - Diarrhoea [Not Recovered/Not Resolved]
